FAERS Safety Report 21261841 (Version 1)
Quarter: 2022Q3

REPORT INFORMATION
  Report Type: Spontaneous
  Country: US (occurrence: US)
  Receive Date: 20220827
  Receipt Date: 20220827
  Transmission Date: 20221027
  Serious: Yes (Other)
  Sender: FDA-Public Use
  Company Number: US-Reliance-000317

PATIENT
  Age: 68 Year
  Sex: Female

DRUGS (2)
  1. CAPECITABINE [Suspect]
     Active Substance: CAPECITABINE
     Indication: Anal squamous cell carcinoma
     Dosage: 1500 MG TWICE A DAY WAS CHANGED TO 1000 MILLIGRAMS (MG) IN THE MORNING AND 2000 MG AT NIGHT
  2. MITOMYCIN [Concomitant]
     Active Substance: MITOMYCIN
     Indication: Anal squamous cell carcinoma

REACTIONS (2)
  - Arteriospasm coronary [Recovered/Resolved]
  - Off label use [Unknown]
